FAERS Safety Report 24194993 (Version 6)
Quarter: 2024Q4

REPORT INFORMATION
  Report Type: Report from Study
  Country: JP (occurrence: JP)
  Receive Date: 20240809
  Receipt Date: 20241113
  Transmission Date: 20250115
  Serious: Yes (Life-Threatening)
  Sender: PFIZER
  Company Number: JP-ONO-2023JP013499

PATIENT
  Age: 31 Year
  Sex: Male
  Weight: 96 kg

DRUGS (11)
  1. BRAFTOVI [Suspect]
     Active Substance: ENCORAFENIB
     Indication: Craniopharyngioma
     Dosage: AFTER BREAKFAST
     Route: 048
     Dates: start: 20220615
  2. BRAFTOVI [Suspect]
     Active Substance: ENCORAFENIB
     Dosage: AFTER BREAKFAST
     Route: 048
     Dates: end: 20240729
  3. MEKTOVI [Suspect]
     Active Substance: BINIMETINIB
     Indication: Craniopharyngioma
     Dosage: AFTER BREAKFAST/BEFORE BEDTIME
     Route: 048
     Dates: start: 20220615
  4. MEKTOVI [Suspect]
     Active Substance: BINIMETINIB
     Dosage: AFTER BREAKFAST/BEFORE BEDTIME
     Route: 048
     Dates: end: 20240729
  5. CORTRIL [Concomitant]
     Active Substance: HYDROCORTISONE
     Indication: Hypopituitarism
     Dosage: 10 MG, Q12H
     Route: 048
  6. LEVOTHYROXINE SODIUM [Concomitant]
     Active Substance: LEVOTHYROXINE SODIUM
     Indication: Hypothyroidism
     Dosage: 50 UG, Q12H
     Route: 048
  7. MINIRINMELT OD [Concomitant]
     Indication: Diabetes insipidus
     Dosage: 300 MCG (120 MCG TWICE DAILY, 60 MCG ONCE DAILY)
     Route: 048
  8. PEMAFIBRATE [Concomitant]
     Active Substance: PEMAFIBRATE
     Indication: Hyperlipidaemia
     Dosage: 0.2 MG, Q12H
     Route: 048
  9. FEBUXOSTAT [Concomitant]
     Active Substance: FEBUXOSTAT
     Indication: Hyperuricaemia
     Dosage: 20 MG, EVERYDAY
     Route: 048
  10. LOXOPROFEN SODIUM [Concomitant]
     Active Substance: LOXOPROFEN SODIUM
     Indication: Back pain
     Dosage: 100 MG, PRN
     Route: 048
  11. REBAMIPIDE [Concomitant]
     Active Substance: REBAMIPIDE
     Indication: Back pain
     Dosage: 100 MG, PRN
     Route: 048

REACTIONS (9)
  - Blood creatine phosphokinase increased [Recovering/Resolving]
  - Blood creatine phosphokinase increased [Recovering/Resolving]
  - Erythema nodosum [Recovering/Resolving]
  - Blood creatine phosphokinase increased [Recovering/Resolving]
  - Blood creatine phosphokinase increased [Recovering/Resolving]
  - Rash [Recovering/Resolving]
  - Haemorrhoids [Recovered/Resolved]
  - Aspartate aminotransferase increased [Unknown]
  - Haemorrhoids [Recovering/Resolving]

NARRATIVE: CASE EVENT DATE: 20220701
